FAERS Safety Report 8312661-5 (Version None)
Quarter: 2012Q2

REPORT INFORMATION
  Report Type: 
  Country: None (occurrence: None)
  Receive Date: 20120426
  Receipt Date: 20120417
  Transmission Date: 20120825
  Serious: Yes (Death, Hospitalization, Other)
  Sender: FDA-Public Use
  Company Number: US-BRISTOL-MYERS SQUIBB COMPANY-16492555

PATIENT
  Age: 74 Year
  Sex: Male
  Weight: 73 kg

DRUGS (18)
  1. SENOKOT [Concomitant]
     Dosage: 8.6MG 2 TABS Q6 HRS PRN
  2. TAXOL [Suspect]
     Indication: OESOPHAGEAL SQUAMOUS CELL CARCINOMA
     Dosage: COURSE 1, RECENT DOSE 6MAR12
     Dates: start: 20120131
  3. LORTAB [Concomitant]
     Dosage: LORTAB 7.5/500 15ML SOLUTION Q4 PRN
  4. ZEBETA [Concomitant]
  5. ERBITUX [Suspect]
     Indication: OESOPHAGEAL SQUAMOUS CELL CARCINOMA
     Dosage: COURSE 1, RECENT DOSE 6MAR12
     Dates: start: 20120131
  6. FOLIC ACID [Concomitant]
  7. NITROSTAT [Concomitant]
     Dosage: 1DF= 0.4 UNITS NOS
     Route: 060
  8. SPIRIVA [Concomitant]
     Dosage: 1DF= 1 CAP INHALED DAILY
     Route: 045
  9. VENTOLIN DS [Concomitant]
     Dosage: 1DF= 2 PUFFS 4 HRS PRN
     Route: 045
  10. ADVAIR DISKUS 100/50 [Concomitant]
     Dosage: 1DF= 1 PUFF
     Route: 045
  11. ASPIRIN [Concomitant]
  12. SLOW-MAG [Concomitant]
     Dosage: 1DF= 2 TABS QID
  13. AMILORIDE HYDROCHLORIDE [Suspect]
  14. PROTONIX [Concomitant]
  15. PREDNISONE [Concomitant]
     Dosage: 20MG FOR 3 DAYS 10MG FOR 3 DAYS 5 MG FOR 3 DAYS
  16. CISPLATIN [Suspect]
     Indication: OESOPHAGEAL SQUAMOUS CELL CARCINOMA
     Dosage: COURSE 1, RECENT DOSE 6MAR12
     Dates: start: 20120131
  17. COMPAZINE [Concomitant]
     Dosage: Q 6 HRS
  18. PRAVASTATIN SODIUM [Concomitant]

REACTIONS (5)
  - DEATH [None]
  - CEREBROVASCULAR ACCIDENT [None]
  - DEHYDRATION [None]
  - MUCOSAL INFECTION [None]
  - PNEUMONITIS [None]
